FAERS Safety Report 14077556 (Version 1)
Quarter: 2017Q4

REPORT INFORMATION
  Report Type: Spontaneous
  Country: GB (occurrence: GB)
  Receive Date: 20171012
  Receipt Date: 20171012
  Transmission Date: 20180321
  Serious: Yes (Hospitalization, Other)
  Sender: FDA-Public Use
  Company Number: GB-AUROBINDO-AUR-APL-2017-41531

PATIENT
  Age: 73 Year
  Sex: Male

DRUGS (2)
  1. ASPIRIN                            /00002701/ [Suspect]
     Active Substance: ASPIRIN
     Indication: PRODUCT USED FOR UNKNOWN INDICATION
     Dosage: 75 MG, UNK
     Route: 048
     Dates: end: 20170921
  2. NAPROXEN. [Suspect]
     Active Substance: NAPROXEN
     Indication: ARTHRALGIA
     Dosage: HE^S UNCERTAIN OF THE DOSE.
     Route: 048
     Dates: end: 20170921

REACTIONS (3)
  - Upper gastrointestinal haemorrhage [Unknown]
  - Inappropriate prescribing [Unknown]
  - Melaena [Unknown]

NARRATIVE: CASE EVENT DATE: 20170831
